FAERS Safety Report 10557597 (Version 2)
Quarter: 2014Q4

REPORT INFORMATION
  Report Type: Report from Study
  Country: JP (occurrence: JP)
  Receive Date: 20141031
  Receipt Date: 20141110
  Transmission Date: 20150529
  Serious: Yes (Hospitalization, Other)
  Sender: FDA-Public Use
  Company Number: JP-GLAXOSMITHKLINE-JP2014JPN009645

PATIENT
  Age: 67 Year
  Sex: Female

DRUGS (9)
  1. MADOPAR [Suspect]
     Active Substance: BENSERAZIDE HYDROCHLORIDE\LEVODOPA
     Indication: PARKINSON^S DISEASE
     Dosage: UNK
     Route: 048
     Dates: end: 20140713
  2. SYMMETREL [Suspect]
     Active Substance: AMANTADINE HYDROCHLORIDE
     Indication: PARKINSON^S DISEASE
     Dosage: UNK
     Route: 048
     Dates: end: 20130905
  3. ROPINIROLE HYDROCHLORIDE. [Suspect]
     Active Substance: ROPINIROLE HYDROCHLORIDE
     Indication: PARKINSON^S DISEASE
     Dosage: 8 MG, BID
     Route: 048
     Dates: start: 20130830, end: 20140713
  4. COMTAN [Suspect]
     Active Substance: ENTACAPONE
     Indication: PARKINSON^S DISEASE
     Dosage: UNK
     Route: 048
     Dates: end: 20140713
  5. SYMMETREL [Suspect]
     Active Substance: AMANTADINE HYDROCHLORIDE
     Dosage: UNK
     Route: 048
     Dates: start: 20130906, end: 20140406
  6. SYMMETREL [Suspect]
     Active Substance: AMANTADINE HYDROCHLORIDE
     Dosage: UNK
     Route: 048
     Dates: start: 20140407, end: 20140713
  7. NOURIAST [Suspect]
     Active Substance: ISTRADEFYLLINE
     Dosage: UNK
     Route: 048
     Dates: start: 20130913, end: 20140713
  8. NOURIAST [Suspect]
     Active Substance: ISTRADEFYLLINE
     Indication: PARKINSON^S DISEASE
     Dosage: UNK
     Route: 048
     Dates: end: 20130912
  9. AMITIZA [Concomitant]
     Active Substance: LUBIPROSTONE
     Dosage: UNK
     Dates: end: 20140713

REACTIONS (2)
  - Hallucination [Recovering/Resolving]
  - Neuroleptic malignant syndrome [Recovering/Resolving]

NARRATIVE: CASE EVENT DATE: 20140407
